FAERS Safety Report 8482872-7 (Version None)
Quarter: 2012Q3

REPORT INFORMATION
  Report Type: 
  Country: None (occurrence: None)
  Receive Date: 20120702
  Receipt Date: 20120619
  Transmission Date: 20120928
  Serious: Yes (Hospitalization)
  Sender: FDA-Public Use
  Company Number: US-ACTELION-A-NJ2010-38277

PATIENT

DRUGS (1)
  1. TRACLEER [Suspect]
     Indication: PULMONARY ARTERIAL HYPERTENSION
     Dosage: UNK
     Route: 048
     Dates: start: 20070606

REACTIONS (4)
  - DEVICE MALFUNCTION [None]
  - VENTRICULAR TACHYCARDIA [None]
  - IMPLANTABLE DEFIBRILLATOR INSERTION [None]
  - ATRIAL FIBRILLATION [None]
